FAERS Safety Report 6316088-7 (Version None)
Quarter: 2009Q3

REPORT INFORMATION
  Report Type: 
  Country: None (occurrence: None)
  Receive Date: 20090820
  Receipt Date: 20090812
  Transmission Date: 20100115
  Serious: Yes (Other)
  Sender: FDA-Public Use
  Company Number: PHEH2009US09361

PATIENT
  Age: 50 Year
  Sex: Male

DRUGS (2)
  1. ZOMETA [Suspect]
     Dosage: 4 MG, QMO
     Route: 042
     Dates: start: 20080307, end: 20090722
  2. AREDIA [Suspect]
     Dosage: UNK
     Dates: start: 20070404, end: 20080208

REACTIONS (3)
  - BONE MARROW TRANSPLANT [None]
  - ORAL PAIN [None]
  - OSTEONECROSIS [None]
